FAERS Safety Report 7243580-3 (Version None)
Quarter: 2011Q1

REPORT INFORMATION
  Report Type: 
  Country: None (occurrence: None)
  Receive Date: 20110125
  Receipt Date: 20110112
  Transmission Date: 20110831
  Serious: Yes (Hospitalization)
  Sender: FDA-Public Use
  Company Number: PHHY2011FR02525

PATIENT
  Sex: Female

DRUGS (4)
  1. FOSAMAX [Concomitant]
     Indication: OSTEOPOROSIS
     Dosage: 70 MG, QW
  2. ISOPTIN [Concomitant]
     Dosage: 120 MG, QD
  3. MOPRAL [Concomitant]
     Dosage: 20 MG, QD
     Dates: start: 20101127, end: 20101206
  4. VOLTAREN [Suspect]
     Indication: OSTEOARTHRITIS
     Dosage: 2 DF, UNK
     Dates: start: 20101127, end: 20101206

REACTIONS (6)
  - GASTRIC ULCER [None]
  - HELICOBACTER INFECTION [None]
  - CONSTIPATION [None]
  - RECTAL HAEMORRHAGE [None]
  - DIVERTICULUM INTESTINAL HAEMORRHAGIC [None]
  - THROMBOSIS [None]
